FAERS Safety Report 16411523 (Version 3)
Quarter: 2019Q3

REPORT INFORMATION
  Report Type: Spontaneous
  Country: US (occurrence: US)
  Receive Date: 20190610
  Receipt Date: 20190708
  Transmission Date: 20191004
  Serious: Yes (Hospitalization, Other)
  Sender: FDA-Public Use
  Company Number: US-STRONGBRIDGE BIOPHARMA-2019-STR-000138

PATIENT
  Sex: Female

DRUGS (2)
  1. KEVEYIS [Suspect]
     Active Substance: DICHLORPHENAMIDE
     Indication: FAMILIAL PERIODIC PARALYSIS
     Dosage: 50 MG, BID
     Route: 048
     Dates: start: 20180717
  2. KEVEYIS [Suspect]
     Active Substance: DICHLORPHENAMIDE
     Dosage: 25 MG, QD
     Route: 048

REACTIONS (9)
  - Malaise [Unknown]
  - Carbon dioxide decreased [Unknown]
  - Product dose omission [Unknown]
  - Atrial fibrillation [Unknown]
  - Cataract [Not Recovered/Not Resolved]
  - Dyspnoea [Unknown]
  - Disease recurrence [Unknown]
  - Muscle discomfort [Unknown]
  - Tremor [Unknown]

NARRATIVE: CASE EVENT DATE: 2019
